FAERS Safety Report 21562024 (Version 3)
Quarter: 2022Q4

REPORT INFORMATION
  Report Type: Report from Study
  Country: US (occurrence: US)
  Receive Date: 20221107
  Receipt Date: 20221128
  Transmission Date: 20230113
  Serious: Yes (Death, Hospitalization, Other)
  Sender: FDA-Public Use
  Company Number: US-BRISTOL-MYERS SQUIBB COMPANY-2022-128997

PATIENT
  Age: 83 Year
  Sex: Male

DRUGS (1)
  1. CAMZYOS [Suspect]
     Active Substance: MAVACAMTEN
     Indication: Product used for unknown indication
     Route: 048

REACTIONS (3)
  - COVID-19 [Fatal]
  - Pulmonary thrombosis [Fatal]
  - Pneumonia [Fatal]

NARRATIVE: CASE EVENT DATE: 20221026
